FAERS Safety Report 21471728 (Version 1)
Quarter: 2022Q4

REPORT INFORMATION
  Report Type: Spontaneous
  Country: US (occurrence: None)
  Receive Date: 20221018
  Receipt Date: 20221018
  Transmission Date: 20230113
  Serious: Yes (Hospitalization, Other)
  Sender: FDA-Public Use
  Company Number: 2022A343217

PATIENT
  Age: 716 Month
  Sex: Female
  Weight: 74.8 kg

DRUGS (2)
  1. EVUSHELD [Suspect]
     Active Substance: CILGAVIMAB\TIXAGEVIMAB
     Indication: Immune system disorder
     Route: 030
     Dates: start: 20220608
  2. PRIVIGEN [Concomitant]
     Active Substance: HUMAN IMMUNOGLOBULIN G
     Route: 065

REACTIONS (6)
  - Myocardial infarction [Unknown]
  - Extrasystoles [Not Recovered/Not Resolved]
  - Decreased activity [Recovering/Resolving]
  - Fatigue [Recovering/Resolving]
  - Cardiac disorder [Not Recovered/Not Resolved]
  - Memory impairment [Recovered/Resolved]

NARRATIVE: CASE EVENT DATE: 20220901
